FAERS Safety Report 17116212 (Version 1)
Quarter: 2019Q4

REPORT INFORMATION
  Report Type: Report from Study
  Country: GB (occurrence: IT)
  Receive Date: 20191205
  Receipt Date: 20191205
  Transmission Date: 20200122
  Serious: Yes (Other)
  Sender: FDA-Public Use
  Company Number: IT-BAYER-2019-216591

PATIENT
  Age: 30 Year
  Sex: Male

DRUGS (1)
  1. ULTRAVIST [Suspect]
     Active Substance: IOPROMIDE
     Indication: INVESTIGATION
     Dosage: 80 ML, ONCE
     Route: 042
     Dates: start: 20191018, end: 20191018

REACTIONS (4)
  - Pruritus allergic [Recovered/Resolved]
  - Conjunctival haemorrhage [Recovered/Resolved]
  - Contrast media allergy [Recovered/Resolved]
  - Hypersensitivity [Recovered/Resolved]

NARRATIVE: CASE EVENT DATE: 20191018
